FAERS Safety Report 12147768 (Version 1)
Quarter: 2016Q1

REPORT INFORMATION
  Report Type: Spontaneous
  Country: BR (occurrence: BR)
  Receive Date: 20160304
  Receipt Date: 20160304
  Transmission Date: 20160526
  Serious: Yes (Hospitalization, Other)
  Sender: FDA-Public Use
  Company Number: BR-PFIZER INC-2016135142

PATIENT
  Sex: Female

DRUGS (1)
  1. DEPO-PROVERA [Suspect]
     Active Substance: MEDROXYPROGESTERONE ACETATE
     Indication: CONTRACEPTION
     Dosage: UNK, EVERY 3 MONTHS
     Dates: start: 20130716, end: 20141017

REACTIONS (12)
  - Decreased appetite [Unknown]
  - Diabetes mellitus [Unknown]
  - Activities of daily living impaired [Unknown]
  - Condition aggravated [Unknown]
  - Insomnia [Unknown]
  - Drug ineffective [Unknown]
  - Oligohydramnios [Unknown]
  - Mental disorder [Unknown]
  - Unintended pregnancy [Unknown]
  - Vomiting [Unknown]
  - Depressed mood [Unknown]
  - Pain [Unknown]
